FAERS Safety Report 5389042-X (Version None)
Quarter: 2007Q3

REPORT INFORMATION
  Report Type: 
  Country: None (occurrence: None)
  Receive Date: 20070717
  Receipt Date: 20070713
  Transmission Date: 20080115
  Serious: Yes (Disabling)
  Sender: FDA-Public Use
  Company Number: GB-SP-2007-01790

PATIENT
  Age: 69 Year
  Sex: Male
  Weight: 78 kg

DRUGS (1)
  1. IMMUCYST [Suspect]
     Indication: CARCINOMA IN SITU
     Route: 043
     Dates: start: 20060823, end: 20061212

REACTIONS (2)
  - DYSURIA [None]
  - POLLAKIURIA [None]
